FAERS Safety Report 13168934 (Version 2)
Quarter: 2018Q1

REPORT INFORMATION
  Report Type: Spontaneous
  Country: US (occurrence: US)
  Receive Date: 20170131
  Receipt Date: 20180125
  Transmission Date: 20180508
  Serious: No
  Sender: FDA-Public Use
  Company Number: US-ABBVIE-16K-163-1613150-00

PATIENT
  Sex: Female

DRUGS (1)
  1. HUMIRA [Suspect]
     Active Substance: ADALIMUMAB
     Indication: HIDRADENITIS
     Route: 058
     Dates: start: 201511

REACTIONS (9)
  - Gait inability [Unknown]
  - Pain [Unknown]
  - General physical condition abnormal [Unknown]
  - Psoriasis [Unknown]
  - Hidradenitis [Unknown]
  - Frustration tolerance decreased [Unknown]
  - Emotional distress [Unknown]
  - Axillary pain [Unknown]
  - Drug ineffective [Unknown]
